FAERS Safety Report 7833132-6 (Version None)
Quarter: 2011Q4

REPORT INFORMATION
  Report Type: 
  Country: None (occurrence: None)
  Receive Date: 20111024
  Receipt Date: 20111019
  Transmission Date: 20120403
  Serious: Yes (Other)
  Sender: FDA-Public Use
  Company Number: US-JNJFOC-20111008577

PATIENT
  Sex: Male

DRUGS (2)
  1. KETAMINE HCL [Concomitant]
     Route: 061
  2. NUCYNTA [Suspect]
     Indication: COMPLEX REGIONAL PAIN SYNDROME
     Route: 048

REACTIONS (1)
  - SEROTONIN SYNDROME [None]
